FAERS Safety Report 9278207 (Version 2)
Quarter: 2013Q2

REPORT INFORMATION
  Report Type: Spontaneous
  Country: US (occurrence: US)
  Receive Date: 20130508
  Receipt Date: 20130621
  Transmission Date: 20140414
  Serious: Yes (Hospitalization, Other)
  Sender: FDA-Public Use
  Company Number: US-BAYER-2013-056663

PATIENT
  Age: 57 Year
  Sex: Male
  Weight: 82.54 kg

DRUGS (1)
  1. ALEVE CAPLET [Suspect]
     Indication: ANALGESIC THERAPY
     Dosage: 2 DF, OTHER FREQUENCY
     Route: 048
     Dates: start: 201305, end: 201305

REACTIONS (6)
  - Urticaria [None]
  - Hypersensitivity [None]
  - Dyspnoea [Recovered/Resolved]
  - Loss of consciousness [Recovered/Resolved]
  - Hypersensitivity [None]
  - Urticaria [Recovered/Resolved]
